FAERS Safety Report 15912038 (Version 1)
Quarter: 2019Q1

REPORT INFORMATION
  Report Type: Spontaneous
  Country: US (occurrence: US)
  Receive Date: 20190204
  Receipt Date: 20190204
  Transmission Date: 20190417
  Serious: Yes (Other)
  Sender: FDA-Public Use
  Company Number: US-ABBVIE-18K-163-2359896-00

PATIENT
  Age: 28 Year
  Sex: Female
  Weight: 86.26 kg

DRUGS (7)
  1. ENBREL [Suspect]
     Active Substance: ETANERCEPT
     Route: 065
     Dates: end: 201506
  2. METHOTREXATE. [Suspect]
     Active Substance: METHOTREXATE
     Indication: PSORIATIC ARTHROPATHY
     Route: 065
     Dates: end: 201404
  3. OTEZLA [Concomitant]
     Active Substance: APREMILAST
     Indication: PRODUCT USED FOR UNKNOWN INDICATION
  4. HUMIRA [Suspect]
     Active Substance: ADALIMUMAB
     Indication: PSORIATIC ARTHROPATHY
     Route: 058
     Dates: end: 201501
  5. ENBREL [Suspect]
     Active Substance: ETANERCEPT
     Indication: PSORIATIC ARTHROPATHY
     Route: 065
     Dates: start: 2013, end: 2014
  6. OTEZLA [Concomitant]
     Active Substance: APREMILAST
     Dates: start: 201508
  7. XELJANZ XR [Concomitant]
     Active Substance: TOFACITINIB CITRATE
     Indication: PRODUCT USED FOR UNKNOWN INDICATION
     Dates: start: 20180418

REACTIONS (10)
  - Psoriasis [Unknown]
  - Infection [Not Recovered/Not Resolved]
  - Drug effect incomplete [Unknown]
  - Pneumonia [Recovered/Resolved]
  - Otitis media [Unknown]
  - Dermatitis psoriasiform [Unknown]
  - Bronchitis [Unknown]
  - Pneumonia [Recovered/Resolved]
  - Pneumonia [Unknown]
  - Arthralgia [Unknown]

NARRATIVE: CASE EVENT DATE: 2013
